FAERS Safety Report 8616409-6 (Version None)
Quarter: 2012Q3

REPORT INFORMATION
  Report Type: 
  Country: None (occurrence: None)
  Receive Date: 20120823
  Receipt Date: 20120816
  Transmission Date: 20120928
  Serious: Yes (Hospitalization)
  Sender: FDA-Public Use
  Company Number: US-AMGEN-USASP2012052447

PATIENT
  Age: 84 Year
  Sex: Female
  Weight: 48.073 kg

DRUGS (2)
  1. PROCRIT [Suspect]
     Indication: ANAEMIA
     Dosage: 10 IU, Q2WK
     Route: 058
     Dates: start: 20100101
  2. PROCRIT [Suspect]
     Dosage: 20 IU, Q2WK
     Route: 058

REACTIONS (9)
  - ABASIA [None]
  - PELVIC FRACTURE [None]
  - INJECTION SITE PRURITUS [None]
  - INJECTION SITE ERYTHEMA [None]
  - DYSPNOEA [None]
  - TREMOR [None]
  - HAEMOGLOBIN DECREASED [None]
  - ASTHENIA [None]
  - FALL [None]
